FAERS Safety Report 7409892-5 (Version None)
Quarter: 2011Q2

REPORT INFORMATION
  Report Type: 
  Country: None (occurrence: None)
  Receive Date: 20110412
  Receipt Date: 20110406
  Transmission Date: 20111010
  Serious: Yes (Life-Threatening, Other)
  Sender: FDA-Public Use
  Company Number: US-ELI_LILLY_AND_COMPANY-USA020921198

PATIENT
  Sex: Female

DRUGS (5)
  1. HUMULIN R [Suspect]
     Dosage: UNK, UNKNOWN
     Route: 058
     Dates: start: 19940101
  2. PREDNISONE [Concomitant]
     Dosage: UNK, UNKNOWN
     Route: 048
  3. HUMALOG [Suspect]
     Indication: TYPE 2 DIABETES MELLITUS
     Dosage: UNK, AS NEEDED
     Route: 058
     Dates: start: 20000101
  4. HUMULIN R [Suspect]
     Indication: TYPE 2 DIABETES MELLITUS
     Dosage: 70 U, DAILY (1/D)
     Route: 058
     Dates: start: 19940101
  5. GLUCOPHAGE [Concomitant]
     Indication: DIABETES MELLITUS
     Dosage: UNK, UNKNOWN
     Route: 058

REACTIONS (14)
  - KNEE OPERATION [None]
  - FALL [None]
  - NAUSEA [None]
  - BURSITIS [None]
  - HIATUS HERNIA [None]
  - ARTHRALGIA [None]
  - DEPRESSION [None]
  - NERVE INJURY [None]
  - GAIT DISTURBANCE [None]
  - JOINT INJURY [None]
  - ARTHRITIS [None]
  - OSTEONECROSIS [None]
  - RESPIRATORY ARREST [None]
  - VOMITING [None]
